FAERS Safety Report 6764460-3 (Version None)
Quarter: 2010Q2

REPORT INFORMATION
  Report Type: 
  Country: None (occurrence: None)
  Receive Date: 20100610
  Receipt Date: 20100601
  Transmission Date: 20101027
  Serious: No
  Sender: FDA-Public Use
  Company Number: US-ROXANE LABORATORIES, INC.-2010-RO-00694RO

PATIENT
  Age: 58 Year
  Sex: Female

DRUGS (9)
  1. LITHIUM CARBONATE CAP [Suspect]
     Indication: BIPOLAR DISORDER
     Dosage: 600 MG
     Route: 048
     Dates: start: 20090101, end: 20100301
  2. LITHIUM CARBONATE CAP [Suspect]
     Dosage: 750 MG
     Dates: start: 20100301
  3. LEXAPRO [Suspect]
     Indication: DEPRESSION
     Dosage: 20 MG
     Route: 048
     Dates: start: 20090101, end: 20100301
  4. LEXAPRO [Suspect]
     Indication: ANXIETY
     Dosage: 10 MG
     Route: 048
     Dates: start: 20100301, end: 20100301
  5. LEXAPRO [Suspect]
     Dosage: 5 MG
     Route: 048
     Dates: start: 20100301
  6. TEGRETOL [Concomitant]
     Indication: BIPOLAR DISORDER
     Dosage: 600 MG
     Route: 048
  7. ATIVAN [Concomitant]
     Indication: ANXIETY
     Dosage: 1.5 MG
     Route: 048
  8. VITAMIN D [Concomitant]
  9. HALDOL [Concomitant]
     Indication: BIPOLAR DISORDER
     Route: 048

REACTIONS (4)
  - DYSPNOEA [None]
  - HYPOMANIA [None]
  - INCREASED APPETITE [None]
  - WEIGHT INCREASED [None]
